FAERS Safety Report 4638696-1 (Version None)
Quarter: 2005Q2

REPORT INFORMATION
  Report Type: 
  Country: None (occurrence: None)
  Receive Date: 20050419
  Receipt Date: 20050225
  Transmission Date: 20051028
  Serious: Yes (Hospitalization)
  Sender: FDA-Public Use
  Company Number: IT-BOEHRINGER INGELHEIM PHARMACEUTICALS, INC.-2005-IT-00038IT

PATIENT
  Sex: Male

DRUGS (2)
  1. SPIRIVA [Suspect]
     Indication: BRONCHOPNEUMOPATHY
     Route: 055
     Dates: start: 20050117, end: 20050118
  2. ANTICHOLINERGICS [Concomitant]
     Dates: end: 20050101

REACTIONS (1)
  - BRONCHOSPASM [None]
